FAERS Safety Report 11415864 (Version 1)
Quarter: 2015Q3

REPORT INFORMATION
  Report Type: Spontaneous
  Country: FR (occurrence: FR)
  Receive Date: 20150825
  Receipt Date: 20150825
  Transmission Date: 20151125
  Serious: Yes (Hospitalization, Other)
  Sender: FDA-Public Use
  Company Number: FR-GLAXOSMITHKLINE-FR2015GSK119058

PATIENT
  Sex: Female

DRUGS (4)
  1. KIVEXA [Suspect]
     Active Substance: ABACAVIR SULFATE\LAMIVUDINE
     Indication: HIV INFECTION
     Dosage: UNK
     Route: 064
     Dates: end: 20150604
  2. KALETRA [Concomitant]
     Active Substance: LOPINAVIR\RITONAVIR
     Dosage: UNK
     Dates: start: 201409, end: 20150604
  3. JOSAMYCINE [Concomitant]
     Active Substance: JOSAMYCIN
     Indication: UREAPLASMA TEST POSITIVE
     Dosage: UNK
     Route: 064
     Dates: start: 2015
  4. AMOXICILLINE [Suspect]
     Active Substance: AMOXICILLIN
     Indication: UREAPLASMA TEST POSITIVE
     Dosage: UNK
     Route: 064
     Dates: start: 2015

REACTIONS (8)
  - Neutropenia neonatal [Recovered/Resolved]
  - Haemodynamic instability [Unknown]
  - Jaundice [Unknown]
  - Premature baby [Unknown]
  - Neonatal respiratory distress syndrome [Unknown]
  - Leukopenia neonatal [Recovered/Resolved]
  - Anaemia [Unknown]
  - Foetal exposure during pregnancy [Unknown]

NARRATIVE: CASE EVENT DATE: 20150604
